FAERS Safety Report 15623292 (Version 1)
Quarter: 2018Q4

REPORT INFORMATION
  Report Type: Spontaneous
  Country: IT (occurrence: IT)
  Receive Date: 20181115
  Receipt Date: 20181115
  Transmission Date: 20190205
  Serious: Yes (Other)
  Sender: FDA-Public Use
  Company Number: IT-PFIZER INC-2018468752

PATIENT
  Age: 71 Year
  Sex: Female

DRUGS (9)
  1. EUTIROX [Concomitant]
     Active Substance: LEVOTHYROXINE SODIUM
  2. INDERAL [Concomitant]
     Active Substance: PROPRANOLOL HYDROCHLORIDE
  3. ACIDO ZOLEDRONICO MYLAN [Concomitant]
     Dates: end: 20171213
  4. LOPRESOR [METOPROLOL FUMARATE] [Concomitant]
  5. DIBASE [Concomitant]
     Active Substance: CHOLECALCIFEROL
  6. DELTACORTENE [Concomitant]
     Active Substance: PREDNISONE
  7. IBRANCE [Suspect]
     Active Substance: PALBOCICLIB
     Indication: BREAST CANCER
     Dosage: 125 MG, 1X/DAY
     Route: 048
     Dates: start: 20170810, end: 20171213
  8. FASLODEX [Concomitant]
     Active Substance: FULVESTRANT
     Dates: start: 20170810, end: 20171213
  9. LACIREX [Concomitant]
     Active Substance: LACIDIPINE

REACTIONS (3)
  - Neutropenia [Unknown]
  - Asthenia [Unknown]
  - Headache [Unknown]

NARRATIVE: CASE EVENT DATE: 20170810
